FAERS Safety Report 16964665 (Version 4)
Quarter: 2024Q2

REPORT INFORMATION
  Report Type: Spontaneous
  Country: US (occurrence: US)
  Receive Date: 20191028
  Receipt Date: 20240417
  Transmission Date: 20240715
  Serious: No
  Sender: FDA-Public Use
  Company Number: US-BIOGEN-2019BI00800081

PATIENT
  Sex: Female

DRUGS (1)
  1. TYSABRI [Suspect]
     Active Substance: NATALIZUMAB
     Indication: Multiple sclerosis
     Route: 050
     Dates: start: 20190522

REACTIONS (4)
  - Malaise [Not Recovered/Not Resolved]
  - Cognitive disorder [Unknown]
  - Nervousness [Not Recovered/Not Resolved]
  - Musculoskeletal stiffness [Unknown]
